FAERS Safety Report 21369878 (Version 1)
Quarter: 2022Q3

REPORT INFORMATION
  Report Type: Spontaneous
  Country: US (occurrence: None)
  Receive Date: 20220922
  Receipt Date: 20220922
  Transmission Date: 20221027
  Serious: No
  Sender: FDA-Public Use
  Company Number: None

PATIENT
  Age: 76 Year
  Sex: Female
  Weight: 159.66 kg

DRUGS (13)
  1. LENALIDOMIDE [Suspect]
     Active Substance: LENALIDOMIDE
     Indication: Monoclonal gammopathy
     Dosage: OTHER FREQUENCY : 21D ON 7D OFF;?
     Route: 048
     Dates: start: 202206
  2. ACYCLOVIR [Concomitant]
  3. ATORVASTATIN [Concomitant]
  4. CALCIUM CARBONATE [Concomitant]
  5. CHLORTHALIDONE [Concomitant]
  6. ELIQUIS [Concomitant]
  7. FOLIC + B12 [Concomitant]
  8. GABAPENTIN [Concomitant]
  9. LEVOTHYROXINE [Concomitant]
  10. LOSARTAN [Concomitant]
  11. MAGOX [Concomitant]
  12. METOPROLOL [Concomitant]
     Active Substance: METOPROLOL
  13. VITAMIN D3 [Concomitant]

REACTIONS (1)
  - Neutrophil count increased [None]
